FAERS Safety Report 8851802 (Version 1)
Quarter: 2012Q4

REPORT INFORMATION
  Report Type: Spontaneous
  Country: US (occurrence: None)
  Receive Date: 20121018
  Receipt Date: 20121018
  Transmission Date: 20130627
  Serious: Yes (Life-Threatening, Hospitalization)
  Sender: FDA-Public Use
  Company Number: None

PATIENT
  Age: 47 Year
  Sex: Male
  Weight: 83.92 kg

DRUGS (1)
  1. CRESTOR [Suspect]
     Indication: CHOLESTEROL
     Dates: start: 20120703, end: 20120917

REACTIONS (2)
  - Atrial fibrillation [None]
  - Hypertension [None]
